FAERS Safety Report 6011033-6 (Version None)
Quarter: 2008Q4

REPORT INFORMATION
  Report Type: 
  Country: None (occurrence: None)
  Receive Date: 20081218
  Receipt Date: 20081208
  Transmission Date: 20090506
  Serious: Yes (Other)
  Sender: FDA-Public Use
  Company Number: MX-PFIZER INC-2007061672

PATIENT

DRUGS (4)
  1. EPAMIN [Suspect]
     Indication: HEAD INJURY
     Dosage: 125 MG, 3X/DAY
     Dates: start: 20070101, end: 20070101
  2. NIMOTOP [Concomitant]
     Route: 048
  3. ANALGESICS [Concomitant]
  4. MUSCLE RELAXANTS [Concomitant]

REACTIONS (3)
  - HYPERSENSITIVITY [None]
  - MYCOSIS FUNGOIDES [None]
  - STEVENS-JOHNSON SYNDROME [None]
